FAERS Safety Report 22605287 (Version 1)
Quarter: 2023Q2

REPORT INFORMATION
  Report Type: Other
  Country: US (occurrence: None)
  Receive Date: 20230615
  Receipt Date: 20230615
  Transmission Date: 20230721
  Serious: Yes (Death)
  Sender: FDA-Public Use
  Company Number: US-ROCHE-3369119

PATIENT
  Age: 37 Year
  Sex: Female

DRUGS (8)
  1. RITUXIMAB [Suspect]
     Active Substance: RITUXIMAB
     Indication: Bone marrow conditioning regimen
     Dosage: ON DAYS 1 AND 4 AS PRIMING AND MOBILIZATION
     Route: 042
  2. RITUXIMAB [Suspect]
     Active Substance: RITUXIMAB
     Dosage: ON DAY -7 OF HSCT AS A CONDITIONING REGIMEN
     Route: 042
  3. METHYLPREDNISOLONE [Suspect]
     Active Substance: METHYLPREDNISOLONE
     Indication: Bone marrow conditioning regimen
     Dosage: ON DAY 1
     Route: 042
  4. CYCLOPHOSPHAMIDE [Suspect]
     Active Substance: CYCLOPHOSPHAMIDE
     Indication: Bone marrow conditioning regimen
     Dosage: ON DAY 2
     Route: 065
  5. CYCLOPHOSPHAMIDE [Suspect]
     Active Substance: CYCLOPHOSPHAMIDE
     Dosage: ON DAYS -6 TO -3
     Route: 065
  6. FLUDARABINE [Suspect]
     Active Substance: FLUDARABINE PHOSPHATE
     Indication: Bone marrow conditioning regimen
     Dosage: ON DAYS -6 TO -3
     Route: 065
  7. MESNA [Suspect]
     Active Substance: MESNA
     Indication: Bone marrow conditioning regimen
     Route: 065
  8. PREDNISONE [Suspect]
     Active Substance: PREDNISONE
     Indication: Bone marrow conditioning regimen
     Dosage: {/=10MG PREDNISONE/DAY AT 6 MONTHS AND {/=5 MG/DAY AT 12 MONTHS
     Route: 065

REACTIONS (1)
  - Coronavirus pneumonia [Fatal]
